FAERS Safety Report 11090208 (Version 1)
Quarter: 2015Q2

REPORT INFORMATION
  Report Type: Spontaneous
  Country: CA (occurrence: None)
  Receive Date: 20150501
  Receipt Date: 20150501
  Transmission Date: 20150821
  Serious: Yes (Other)
  Sender: FDA-Public Use
  Company Number: 2839344

PATIENT
  Age: 72 Year
  Sex: Female

DRUGS (3)
  1. VALACICLOVIR [Concomitant]
     Active Substance: VALACYCLOVIR HYDROCHLORIDE
  2. DEFEROXAMINE MESILATE [Suspect]
     Active Substance: DEFEROXAMINE MESYLATE
     Indication: IRON OVERLOAD
     Route: 058
  3. JAKAFI [Concomitant]
     Active Substance: RUXOLITINIB

REACTIONS (11)
  - Dyspnoea [None]
  - Malaise [None]
  - Vulvovaginal burning sensation [None]
  - Constipation [None]
  - Dysuria [None]
  - Joint swelling [None]
  - Pain [None]
  - Infection [None]
  - Endometrial cancer metastatic [None]
  - Bowel movement irregularity [None]
  - Haemoglobin decreased [None]
